FAERS Safety Report 5119446-1 (Version None)
Quarter: 2006Q3

REPORT INFORMATION
  Report Type: 
  Country: None (occurrence: None)
  Receive Date: 20060929
  Receipt Date: 20060919
  Transmission Date: 20061208
  Serious: Yes (Other)
  Sender: FDA-Public Use
  Company Number: 2006113538

PATIENT
  Age: 65 Year
  Sex: Male
  Weight: 108.8633 kg

DRUGS (3)
  1. LYRICA [Suspect]
     Indication: NERVE INJURY
     Dosage: 150 MG (50 MG, 3 IN 1 D)
     Dates: start: 20060601, end: 20060801
  2. NEURONTIN [Suspect]
     Indication: NERVE INJURY
  3. ARTHROTEC [Concomitant]

REACTIONS (7)
  - BLISTER [None]
  - DISTURBANCE IN ATTENTION [None]
  - DRUG INEFFECTIVE [None]
  - EYE DISORDER [None]
  - PARAESTHESIA [None]
  - RASH [None]
  - VISION BLURRED [None]
